FAERS Safety Report 6430225-5 (Version None)
Quarter: 2009Q4

REPORT INFORMATION
  Report Type: 
  Country: None (occurrence: None)
  Receive Date: 20091106
  Receipt Date: 20091028
  Transmission Date: 20100525
  Serious: Yes (Other)
  Sender: FDA-Public Use
  Company Number: US-AVENTIS-200919558US

PATIENT
  Sex: Male

DRUGS (5)
  1. LANTUS [Suspect]
     Dosage: DOSE: UNK
     Route: 058
  2. NPH INSULIN [Concomitant]
     Dosage: DOSE: UNK
  3. OXYGEN [Concomitant]
     Dosage: DOSE: UNK
  4. NITRO                              /00003201/ [Concomitant]
     Dosage: DOSE: UNK
  5. HERBAL PREPARATION [Concomitant]
     Dosage: DOSE: UNK

REACTIONS (2)
  - CARDIAC FAILURE CONGESTIVE [None]
  - RENAL FAILURE [None]
